FAERS Safety Report 11143407 (Version 2)
Quarter: 2015Q3

REPORT INFORMATION
  Report Type: Spontaneous
  Country: US (occurrence: US)
  Receive Date: 20150526
  Receipt Date: 20150713
  Transmission Date: 20151125
  Serious: No
  Sender: FDA-Public Use
  Company Number: US-009507513-1505USA004417

PATIENT
  Age: 19 Year
  Sex: Female
  Weight: 108.8 kg

DRUGS (1)
  1. NEXPLANON [Suspect]
     Active Substance: ETONOGESTREL
     Indication: CONTRACEPTION
     Dosage: 68 MG
     Route: 059
     Dates: start: 20150427, end: 20150430

REACTIONS (5)
  - Device expulsion [Recovered/Resolved]
  - Implant site erythema [Recovered/Resolved]
  - Implant site cellulitis [Recovered/Resolved]
  - Implant site discharge [Recovered/Resolved]
  - Implant site inflammation [Recovered/Resolved]

NARRATIVE: CASE EVENT DATE: 20150427
